FAERS Safety Report 18377495 (Version 1)
Quarter: 2020Q4

REPORT INFORMATION
  Report Type: Spontaneous
  Country: US (occurrence: US)
  Receive Date: 20201013
  Receipt Date: 20201013
  Transmission Date: 20210114
  Serious: Yes (Hospitalization, Other)
  Sender: FDA-Public Use
  Company Number: US-VALIDUS PHARMACEUTICALS LLC-US-2020VAL000819

PATIENT

DRUGS (7)
  1. CALCITRIOL. [Suspect]
     Active Substance: CALCITRIOL
     Indication: PROPHYLAXIS
     Dosage: 0.25 ?G, BID
     Route: 065
  2. PREDNISONE. [Concomitant]
     Active Substance: PREDNISONE
     Indication: PRODUCT USED FOR UNKNOWN INDICATION
     Dosage: BEGINNING AT A DOSE OF 50 MG AND TAPERING TO 30 MG BY TWO WEEKS AND TO 5 TO 10 MG BY SIX MONTHS.
     Route: 048
  3. VITAMIN D2 [Concomitant]
     Active Substance: ERGOCALCIFEROL
     Indication: PRODUCT USED FOR UNKNOWN INDICATION
     Dosage: 1000 IU, UNK
  4. CYCLOSPORINE. [Concomitant]
     Active Substance: CYCLOSPORINE
     Indication: PRODUCT USED FOR UNKNOWN INDICATION
     Dosage: BLOOD CYCLOSPORINE LEVELS WERE MAINTAINED BETWEEN 250 AND 300 NG PER ML FOR THE 1ST SIX MONTHS
  5. CYCLOSPORINE. [Concomitant]
     Active Substance: CYCLOSPORINE
     Dosage: AND BETWEEN 200 AND 250 NG PER MILLILITER FOR THE SECOND SIX MONTHS
  6. CALCIUM [Concomitant]
     Active Substance: CALCIUM
     Indication: PRODUCT USED FOR UNKNOWN INDICATION
     Dosage: 945 MG, UNK
  7. METHYLPREDNISOLONE. [Concomitant]
     Active Substance: METHYLPREDNISOLONE
     Indication: PRODUCT USED FOR UNKNOWN INDICATION
     Dosage: UNK
     Route: 042

REACTIONS (2)
  - Cytomegalovirus infection [Unknown]
  - Infection [Unknown]
